FAERS Safety Report 9750185 (Version 2)
Quarter: 2014Q1

REPORT INFORMATION
  Report Type: Spontaneous
  Country: US (occurrence: US)
  Receive Date: 20131212
  Receipt Date: 20140312
  Transmission Date: 20141002
  Serious: No
  Sender: FDA-Public Use
  Company Number: US-TEVA-450820USA

PATIENT
  Age: 35 Year
  Sex: Female
  Weight: 56.75 kg

DRUGS (2)
  1. PLAN B ONE-STEP [Suspect]
     Indication: POST COITAL CONTRACEPTION
     Dosage: 1.5 MILLIGRAM DAILY;
     Route: 048
     Dates: start: 20131111, end: 20131111
  2. TYPHOID VACCINE [Concomitant]
     Indication: IMMUNISATION
     Route: 048
     Dates: start: 20131109, end: 20131115

REACTIONS (2)
  - Menstruation irregular [Recovered/Resolved]
  - Menorrhagia [Recovered/Resolved]
